FAERS Safety Report 7902981-8 (Version None)
Quarter: 2011Q4

REPORT INFORMATION
  Report Type: 
  Country: None (occurrence: None)
  Receive Date: 20111109
  Receipt Date: 20100825
  Transmission Date: 20120403
  Serious: No
  Sender: FDA-Public Use
  Company Number: US-BAYER-201034740NA

PATIENT
  Sex: Female

DRUGS (1)
  1. CLIMARA PRO [Suspect]
     Indication: HOT FLUSH
     Route: 062

REACTIONS (3)
  - FEELING ABNORMAL [None]
  - APPLICATION SITE RASH [None]
  - PRODUCT ADHESION ISSUE [None]
